FAERS Safety Report 6330893-2 (Version None)
Quarter: 2009Q3

REPORT INFORMATION
  Report Type: 
  Country: None (occurrence: None)
  Receive Date: 20090827
  Receipt Date: 20090818
  Transmission Date: 20100115
  Serious: Yes (Hospitalization)
  Sender: FDA-Public Use
  Company Number: US-CELGENEUS-163-20785-09070402

PATIENT
  Sex: Female

DRUGS (2)
  1. THALOMID [Suspect]
     Indication: MULTIPLE MYELOMA
     Route: 048
     Dates: start: 20090601, end: 20090101
  2. THALOMID [Suspect]
     Route: 048
     Dates: start: 20090501, end: 20090601

REACTIONS (5)
  - ABASIA [None]
  - APNOEA [None]
  - BACK PAIN [None]
  - CONVULSION [None]
  - MUSCULOSKELETAL CHEST PAIN [None]
